FAERS Safety Report 8757612 (Version 1)
Quarter: 2012Q4

REPORT INFORMATION
  Report Type: 
  Country: US (occurrence: US)
  Receive Date: 20120828
  Receipt Date: 20120828
  Transmission Date: 20130627
  Serious: No
  Sender: FDA-Public Use
  Company Number: US-009507513-1207USA009530

PATIENT

DRUGS (2)
  1. ZEGERID [Suspect]
     Indication: PRODUCT USED FOR UNKNOWN INDICATION
     Dosage: UNK, Once
     Route: 048
     Dates: start: 20120627, end: 20120627
  2. XANAX [Concomitant]
     Indication: ANXIETY
     Dosage: .25 DF, Unknown

REACTIONS (1)
  - Abdominal pain upper [Unknown]
